FAERS Safety Report 8178856-9 (Version None)
Quarter: 2012Q1

REPORT INFORMATION
  Report Type: 
  Country: None (occurrence: None)
  Receive Date: 20120302
  Receipt Date: 20120224
  Transmission Date: 20120608
  Serious: Yes (Hospitalization, Other)
  Sender: FDA-Public Use
  Company Number: US-BIOGENIDEC-2011BI010340

PATIENT
  Age: 48 Year
  Sex: Female
  Weight: 99 kg

DRUGS (3)
  1. AVONEX [Concomitant]
     Route: 030
  2. AVONEX [Concomitant]
     Route: 030
     Dates: start: 20030217, end: 20040130
  3. TYSABRI [Suspect]
     Indication: MULTIPLE SCLEROSIS
     Route: 042
     Dates: start: 20070108

REACTIONS (8)
  - VISION BLURRED [None]
  - BLOOD PRESSURE FLUCTUATION [None]
  - MULTIPLE SCLEROSIS RELAPSE [None]
  - HEART RATE ABNORMAL [None]
  - INFUSION SITE PAIN [None]
  - CLAUSTROPHOBIA [None]
  - COMPLEX PARTIAL SEIZURES [None]
  - CEREBROVASCULAR ACCIDENT [None]
